FAERS Safety Report 4442551-X (Version None)
Quarter: 2004Q3

REPORT INFORMATION
  Report Type: 
  Country: None (occurrence: None)
  Receive Date: 20040903
  Receipt Date: 20040714
  Transmission Date: 20050211
  Serious: Yes (Other)
  Sender: FDA-Public Use
  Company Number: 2004UW14550

PATIENT
  Age: 71 Year
  Sex: Female
  Weight: 58.514 kg

DRUGS (4)
  1. CRESTOR [Suspect]
     Indication: BLOOD CHOLESTEROL INCREASED
  2. ALTACE [Concomitant]
  3. COREG [Concomitant]
  4. ASPIRIN [Concomitant]

REACTIONS (2)
  - HERPES ZOSTER [None]
  - MYALGIA [None]
